FAERS Safety Report 19479062 (Version 2)
Quarter: 2021Q3

REPORT INFORMATION
  Report Type: Spontaneous
  Country: US (occurrence: US)
  Receive Date: 20210630
  Receipt Date: 20210721
  Transmission Date: 20211014
  Serious: Yes (Hospitalization)
  Sender: FDA-Public Use
  Company Number: US-LUPIN PHARMACEUTICALS INC.-2021-10568

PATIENT
  Age: 8 Decade
  Sex: Male

DRUGS (3)
  1. ABIRATERONE. [Concomitant]
     Active Substance: ABIRATERONE ACETATE
     Indication: PROSTATE CANCER
     Dosage: UNK
     Route: 048
  2. OXYCODONE HYDROCHLORIDE. [Suspect]
     Active Substance: OXYCODONE HYDROCHLORIDE
     Dosage: 5 MG, PRN, INSTANT?RELEASE, HE STARTED TAKING 1 TO 2 TIMES A DAY
     Route: 065
  3. OXYCODONE HYDROCHLORIDE. [Suspect]
     Active Substance: OXYCODONE HYDROCHLORIDE
     Indication: BONE PAIN
     Dosage: 5 MILLIGRAM, PRN, AS NEEDED; PATIENT RECEIVED 1?2 TIMES DAILY. IMMEDIATE RELEASE TABLET, HE STARTED
     Route: 065

REACTIONS (1)
  - Constipation [Recovered/Resolved]
